FAERS Safety Report 20099379 (Version 5)
Quarter: 2022Q1

REPORT INFORMATION
  Report Type: Spontaneous
  Country: US (occurrence: US)
  Receive Date: 20211122
  Receipt Date: 20220107
  Transmission Date: 20220424
  Serious: Yes (Other)
  Sender: FDA-Public Use
  Company Number: US-UNITED THERAPEUTICS-UNT-2021-022103

PATIENT
  Sex: Male

DRUGS (5)
  1. TYVASO [Suspect]
     Active Substance: TREPROSTINIL
     Indication: Pulmonary arterial hypertension
     Dosage: UNK
     Dates: start: 20211026
  2. TYVASO [Suspect]
     Active Substance: TREPROSTINIL
     Dosage: 18 ?G, QID
     Dates: start: 202110, end: 2021
  3. TYVASO [Suspect]
     Active Substance: TREPROSTINIL
     Dosage: 54 ?G, QID
     Dates: start: 20211112, end: 202111
  4. TYVASO [Suspect]
     Active Substance: TREPROSTINIL
     Dosage: 36 ?G, QID
     Dates: start: 20211113
  5. MACITENTAN [Concomitant]
     Active Substance: MACITENTAN
     Indication: Pulmonary arterial hypertension
     Dosage: 10 MG, QD
     Route: 048
     Dates: start: 20210406

REACTIONS (11)
  - Ascites [Recovering/Resolving]
  - Oedema peripheral [Recovered/Resolved]
  - Fatigue [Unknown]
  - Dyspnoea [Recovered/Resolved]
  - Fluid retention [Recovered/Resolved]
  - Abdominal distension [Recovered/Resolved]
  - Dizziness [Recovered/Resolved]
  - Productive cough [Recovered/Resolved]
  - Somnolence [Not Recovered/Not Resolved]
  - Cough [Unknown]
  - Oedema [Unknown]

NARRATIVE: CASE EVENT DATE: 20210101
